FAERS Safety Report 5083837-8 (Version None)
Quarter: 2006Q3

REPORT INFORMATION
  Report Type: 
  Country: None (occurrence: None)
  Receive Date: 20060818
  Receipt Date: 20021024
  Transmission Date: 20061208
  Serious: Yes (Hospitalization)
  Sender: FDA-Public Use
  Company Number: DE-ABBOTT-02P-062-0202919-00

PATIENT
  Sex: Female
  Weight: 103 kg

DRUGS (6)
  1. HUMIRA [Suspect]
     Indication: RHEUMATOID ARTHRITIS
     Route: 058
     Dates: start: 20001005, end: 20020919
  2. HUMIRA [Suspect]
  3. HYDROTALCID-RETHIO-PHARM [Concomitant]
     Indication: PROPHYLAXIS AGAINST GASTROINTESTINAL ULCER
     Route: 048
     Dates: start: 20020910
  4. PREDNISOLONE [Concomitant]
     Indication: RHEUMATOID ARTHRITIS
     Route: 048
     Dates: start: 20010303
  5. PANTOPRAZOLE SODIUM [Concomitant]
     Indication: PROPHYLAXIS AGAINST GASTROINTESTINAL ULCER
  6. FUNGIZID VAGINAL [Concomitant]
     Indication: FUNGAL INFECTION

REACTIONS (7)
  - AUTOIMMUNE DISORDER [None]
  - HEPATIC STEATOSIS [None]
  - LIVER DISORDER [None]
  - NASOPHARYNGITIS [None]
  - PNEUMONIA [None]
  - PNEUMONIA MYCOPLASMAL [None]
  - SPLENOMEGALY [None]
